FAERS Safety Report 9186281 (Version 1)
Quarter: 2013Q1

REPORT INFORMATION
  Report Type: Spontaneous
  Country: ES (occurrence: ES)
  Receive Date: 20130325
  Receipt Date: 20130325
  Transmission Date: 20140127
  Serious: Yes (Life-Threatening)
  Sender: FDA-Public Use
  Company Number: ES-GLAXOSMITHKLINE-B0876814A

PATIENT
  Age: 14 Year
  Sex: Male
  Weight: 62 kg

DRUGS (6)
  1. ULTIVA [Suspect]
     Indication: ANAESTHESIA
     Dosage: .2UGKM PER DAY
     Route: 065
     Dates: start: 20130228
  2. KETOROLAC [Suspect]
     Indication: POSTOPERATIVE ANALGESIA
     Route: 042
     Dates: start: 20130228
  3. PRIMPERAN [Suspect]
     Indication: PROPHYLAXIS OF NAUSEA AND VOMITING
     Route: 042
     Dates: start: 20130228
  4. DIPRIVAN [Suspect]
     Indication: ANAESTHESIA
     Dosage: 6MGKH PER DAY
     Route: 065
     Dates: start: 20130228
  5. RANITIDINA [Suspect]
     Indication: PROPHYLAXIS AGAINST GASTROINTESTINAL ULCER
     Route: 042
     Dates: start: 20130228
  6. METILPREDNISOLONA [Concomitant]
     Indication: PRODUCT USED FOR UNKNOWN INDICATION
     Route: 065
     Dates: start: 20130228

REACTIONS (2)
  - Sinus bradycardia [Recovered/Resolved]
  - Nodal rhythm [Recovered/Resolved]
